FAERS Safety Report 6960616-5 (Version None)
Quarter: 2010Q3

REPORT INFORMATION
  Report Type: 
  Country: None (occurrence: None)
  Receive Date: 20100901
  Receipt Date: 20100819
  Transmission Date: 20110219
  Serious: Yes (Hospitalization)
  Sender: FDA-Public Use
  Company Number: ES-ELI_LILLY_AND_COMPANY-ES201008005708

PATIENT
  Sex: Female
  Weight: 66 kg

DRUGS (9)
  1. FORTEO [Suspect]
     Indication: OSTEOPOROSIS
     Dosage: 20 UG, DAILY (1/D)
     Route: 058
     Dates: start: 20091229
  2. LORAZEPAM [Concomitant]
     Indication: INSOMNIA
     Dosage: 2 D/F, DAILY (1/D)
     Route: 048
  3. CO VALS [Concomitant]
     Indication: HYPERTENSION
     Dosage: 1 D/F, DAILY (1/D)
     Route: 048
  4. OMEPRAZOLE [Concomitant]
     Dosage: 40 MG, DAILY (1/D)
     Route: 048
  5. DIGARIL [Concomitant]
     Indication: DYSLIPIDAEMIA
     Dosage: 80 MG, DAILY (1/D)
     Route: 048
  6. BONIVA [Concomitant]
     Indication: OSTEOPOROSIS
     Dosage: 1 D/F, EVERY 28 DAYS
  7. SUTRIL [Concomitant]
     Indication: DIURETIC THERAPY
     Dosage: 10 MG, DAILY (1/D)
     Route: 048
  8. ACETAMINOPHEN [Concomitant]
     Indication: PAIN
     Dosage: 1 D/F, EVERY 8 HRS
     Route: 048
     Dates: start: 20100801
  9. NOLOTIL [Concomitant]
     Indication: PAIN
     Dosage: UNK, AS NEEDED
     Route: 048
     Dates: start: 20100801

REACTIONS (2)
  - FALL [None]
  - HIP ARTHROPLASTY [None]
